FAERS Safety Report 12413179 (Version 1)
Quarter: 2016Q2

REPORT INFORMATION
  Report Type: Report from Study
  Country: MY (occurrence: MY)
  Receive Date: 20160527
  Receipt Date: 20160527
  Transmission Date: 20160815
  Serious: Yes (Death)
  Sender: FDA-Public Use
  Company Number: PHHY2016MY051686

PATIENT
  Age: 62 Year
  Sex: Male

DRUGS (1)
  1. AFINITOR [Suspect]
     Active Substance: EVEROLIMUS
     Indication: COLON CANCER
     Dosage: 5 MG, QD
     Route: 048
     Dates: start: 20160407

REACTIONS (3)
  - Product use issue [Unknown]
  - Rash generalised [Unknown]
  - Death [Fatal]

NARRATIVE: CASE EVENT DATE: 20160506
